FAERS Safety Report 8928796 (Version 2)
Quarter: 2013Q1

REPORT INFORMATION
  Report Type: Spontaneous
  Country: US (occurrence: None)
  Receive Date: 20121120
  Receipt Date: 20121227
  Transmission Date: 20140127
  Serious: Yes (Other)
  Sender: FDA-Public Use
  Company Number: AUR-APL-2012-04893

PATIENT
  Sex: Female
  Weight: 61.68 kg

DRUGS (6)
  1. CITALOPRAM (CITALOPRAM) [Suspect]
     Indication: DEPRESSION
     Dates: start: 2012
  2. REVATIO [Suspect]
     Indication: SCLERODERMA
     Dates: start: 2010
  3. NIFEDIPINE [Suspect]
     Indication: SYSTEMIC LUPUS ERYTHEMATOSUS
     Dates: start: 2011
  4. PROCRIT [Suspect]
     Indication: ANAEMIA
     Dates: start: 2011
  5. IRON [Suspect]
     Indication: ANAEMIA
     Dates: start: 2012
  6. PLAQUENIL [Suspect]
     Indication: AUTOIMMUNE DISORDER
     Dates: end: 2012

REACTIONS (4)
  - Weight decreased [None]
  - Arthropathy [None]
  - Skin discolouration [None]
  - No therapeutic response [None]
